FAERS Safety Report 14358106 (Version 3)
Quarter: 2018Q3

REPORT INFORMATION
  Report Type: Report from Study
  Country: US (occurrence: US)
  Receive Date: 20180105
  Receipt Date: 20180719
  Transmission Date: 20181010
  Serious: Yes (Other)
  Sender: FDA-Public Use
  Company Number: US-AMGEN-USASL2017190002

PATIENT
  Age: 56 Year
  Sex: Female

DRUGS (2)
  1. REPATHA [Suspect]
     Active Substance: EVOLOCUMAB
     Indication: HYPERCHOLESTEROLAEMIA
  2. REPATHA [Suspect]
     Active Substance: EVOLOCUMAB
     Indication: BLOOD CHOLESTEROL INCREASED
     Dosage: 140 MG, Q2WK
     Route: 065

REACTIONS (9)
  - Headache [Unknown]
  - Rhinorrhoea [Unknown]
  - Arthralgia [Unknown]
  - Ear pain [Unknown]
  - Throat irritation [Unknown]
  - Cough [Unknown]
  - Back pain [Unknown]
  - Injection site pain [Unknown]
  - Injection site bruising [Unknown]
